FAERS Safety Report 22636056 (Version 1)
Quarter: 2023Q2

REPORT INFORMATION
  Report Type: Spontaneous
  Country: IT (occurrence: IT)
  Receive Date: 20230623
  Receipt Date: 20230623
  Transmission Date: 20230721
  Serious: Yes (Hospitalization)
  Sender: FDA-Public Use
  Company Number: None

PATIENT
  Age: 21 Year
  Sex: Male

DRUGS (4)
  1. MESALAMINE [Suspect]
     Active Substance: MESALAMINE
     Indication: Colitis ulcerative
     Dosage: UNK UNK, QD
     Route: 065
  2. TACROLIMUS [Suspect]
     Active Substance: TACROLIMUS
     Indication: Liver transplant
     Dosage: UNK UNK, QD
     Route: 065
     Dates: start: 202111
  3. DEURSIL [Concomitant]
     Active Substance: URSODIOL
     Indication: Cholangitis sclerosing
     Dosage: 450 MILLIGRAM, QD
  4. AZATHIOPRINE [Concomitant]
     Active Substance: AZATHIOPRINE
     Indication: Liver transplant
     Dosage: UNK UNK, QD

REACTIONS (1)
  - Papilloedema [Recovering/Resolving]

NARRATIVE: CASE EVENT DATE: 20230301
